FAERS Safety Report 6056182-1 (Version None)
Quarter: 2009Q1

REPORT INFORMATION
  Report Type: 
  Country: None (occurrence: None)
  Receive Date: 20090123
  Receipt Date: 20090123
  Transmission Date: 20090719
  Serious: Yes (Death)
  Sender: FDA-Public Use
  Company Number: None

PATIENT
  Age: 11 Month
  Sex: Female
  Weight: 5.8 kg

DRUGS (14)
  1. ZIDOVUDINE [Suspect]
     Indication: HIV INFECTION
     Dosage: 60 MG BID ORAL
     Route: 048
     Dates: start: 20081216, end: 20081226
  2. LAMIVUDINE [Suspect]
     Indication: HIV INFECTION
     Dosage: 20 MG BID ORAL
     Route: 048
     Dates: start: 20081216, end: 20081226
  3. NEVIRAPINE [Suspect]
     Indication: HIV INFECTION
     Dosage: 20 MG ONCE ORAL
     Route: 048
     Dates: start: 20081216, end: 20081226
  4. COTRIM [Concomitant]
  5. VITAMIN A [Concomitant]
  6. VITAMIN B1 TAB [Concomitant]
  7. VITAMIN B-12 [Concomitant]
  8. RIBOFLAVIN TAB [Concomitant]
  9. NICOTINAMIDE [Concomitant]
  10. FOLIC ACID [Concomitant]
  11. GREEN IRON AMMONIUM CITRATE [Concomitant]
  12. ORS [Concomitant]
  13. NYSTATIN [Concomitant]
  14. ZINC GLUCONATE [Concomitant]

REACTIONS (19)
  - BASOPHIL PERCENTAGE INCREASED [None]
  - BLOOD ALBUMIN DECREASED [None]
  - BLOOD POTASSIUM DECREASED [None]
  - BLOOD SODIUM DECREASED [None]
  - CACHEXIA [None]
  - CONDITION AGGRAVATED [None]
  - DEHYDRATION [None]
  - DIARRHOEA [None]
  - GENERAL PHYSICAL HEALTH DETERIORATION [None]
  - MALNUTRITION [None]
  - MUCOSAL DISCOLOURATION [None]
  - NEUTROPHIL PERCENTAGE DECREASED [None]
  - ORAL CANDIDIASIS [None]
  - PLATELET COUNT INCREASED [None]
  - PYREXIA [None]
  - STOMATITIS [None]
  - TACHYCARDIA [None]
  - TACHYPNOEA [None]
  - VOMITING [None]
